FAERS Safety Report 23943441 (Version 3)
Quarter: 2025Q2

REPORT INFORMATION
  Report Type: Report from Study
  Country: US (occurrence: US)
  Receive Date: 20240605
  Receipt Date: 20250516
  Transmission Date: 20250716
  Serious: Yes (Other)
  Sender: ABBVIE
  Company Number: US-ABBVIE-5785364

PATIENT
  Sex: Female

DRUGS (1)
  1. RINVOQ [Suspect]
     Active Substance: UPADACITINIB
     Indication: Rheumatoid arthritis
     Route: 048

REACTIONS (4)
  - Gastrointestinal dilation procedure [Unknown]
  - Rheumatoid arthritis [Not Recovered/Not Resolved]
  - Feeling abnormal [Unknown]
  - Diabetes mellitus [Not Recovered/Not Resolved]
